FAERS Safety Report 6025348-9 (Version None)
Quarter: 2008Q4

REPORT INFORMATION
  Report Type: 
  Country: None (occurrence: None)
  Receive Date: 20081231
  Receipt Date: 20081219
  Transmission Date: 20090506
  Serious: Yes (Hospitalization)
  Sender: FDA-Public Use
  Company Number: JP-MERCK-0812USA02685

PATIENT
  Age: 71 Year
  Sex: Male

DRUGS (6)
  1. SINGULAIR [Suspect]
     Route: 048
     Dates: start: 20080924, end: 20081106
  2. RULID [Suspect]
     Route: 048
     Dates: start: 20080924, end: 20081106
  3. HERBS (UNSPECIFIED) [Suspect]
     Route: 048
     Dates: start: 20080924, end: 20081106
  4. AMARYL [Concomitant]
     Indication: DIABETES MELLITUS
     Route: 048
     Dates: start: 20030101
  5. METFORMIN HYDROCHLORIDE [Concomitant]
     Indication: DIABETES MELLITUS
     Route: 048
     Dates: start: 20030101, end: 20080904
  6. METFORMIN HCL [Concomitant]
     Indication: DIABETES MELLITUS
     Route: 048
     Dates: start: 20080904, end: 20081106

REACTIONS (1)
  - LIVER DISORDER [None]
